FAERS Safety Report 10592663 (Version 1)
Quarter: 2014Q4

REPORT INFORMATION
  Report Type: Spontaneous
  Country: US (occurrence: None)
  Receive Date: 20141117
  Receipt Date: 20141117
  Transmission Date: 20150529
  Serious: Yes (Other)
  Sender: FDA-Public Use
  Company Number: 2013SA000426

PATIENT
  Sex: Female

DRUGS (1)
  1. PLAVIX [Suspect]
     Active Substance: CLOPIDOGREL BISULFATE
     Indication: PRODUCT USED FOR UNKNOWN INDICATION
     Route: 048
     Dates: start: 200307, end: 201111

REACTIONS (4)
  - Multiple injuries [None]
  - Gastrointestinal haemorrhage [None]
  - Myocardial infarction [None]
  - Ulcer haemorrhage [None]

NARRATIVE: CASE EVENT DATE: 200504
